FAERS Safety Report 16449210 (Version 5)
Quarter: 2021Q3

REPORT INFORMATION
  Report Type: Report from Study
  Country: BR (occurrence: BR)
  Receive Date: 20190619
  Receipt Date: 20210831
  Transmission Date: 20211014
  Serious: Yes (Disabling, Other)
  Sender: FDA-Public Use
  Company Number: BR-EMD SERONO-9095014

PATIENT
  Age: 44 Year
  Sex: Female

DRUGS (2)
  1. REBIF [Suspect]
     Active Substance: INTERFERON BETA-1A
     Indication: MULTIPLE SCLEROSIS
     Route: 058
     Dates: start: 20020425, end: 20200930
  2. BIO?MANGUINHOS BETAINTERFERONA 1A 44 MCG [Suspect]
     Active Substance: INTERFERON BETA-1A
     Indication: MULTIPLE SCLEROSIS
     Dosage: THERAPY START DATE: 02 OCT 2020
     Route: 058

REACTIONS (13)
  - Myocardial infarction [Unknown]
  - Mitral valve disease [Unknown]
  - Eye abscess [Not Recovered/Not Resolved]
  - Glaucoma [Not Recovered/Not Resolved]
  - Pain in extremity [Recovering/Resolving]
  - Urinary retention [Not Recovered/Not Resolved]
  - Back pain [Unknown]
  - Cataract [Unknown]
  - Thrombosis [Recovering/Resolving]
  - Blindness unilateral [Not Recovered/Not Resolved]
  - Aortic valve disease [Unknown]
  - Depression [Unknown]
  - Retinal neoplasm [Not Recovered/Not Resolved]

NARRATIVE: CASE EVENT DATE: 2004
